FAERS Safety Report 5367675-4 (Version None)
Quarter: 2007Q2

REPORT INFORMATION
  Report Type: 
  Country: None (occurrence: None)
  Receive Date: 20070622
  Receipt Date: 20070206
  Transmission Date: 20071010
  Serious: No
  Sender: FDA-Public Use
  Company Number: US-ASTRAZENECA-2007UW02477

PATIENT
  Age: 69 Year
  Sex: Female
  Weight: 79.4 kg

DRUGS (4)
  1. PULMICORT [Suspect]
     Indication: ASTHMA
     Route: 055
     Dates: start: 20060101
  2. ALBUTEROL [Concomitant]
  3. ENALAPRIL [Concomitant]
  4. ASPIRIN [Concomitant]

REACTIONS (1)
  - WEIGHT INCREASED [None]
